FAERS Safety Report 4863225-7 (Version None)
Quarter: 2005Q4

REPORT INFORMATION
  Report Type: 
  Country: None (occurrence: None)
  Receive Date: 20051219
  Receipt Date: 20051207
  Transmission Date: 20060501
  Serious: Yes (Other)
  Sender: FDA-Public Use
  Company Number: 2005166980

PATIENT
  Age: 75 Year
  Sex: Female
  Weight: 71.2147 kg

DRUGS (6)
  1. NORVASC [Suspect]
     Indication: HYPERTENSION
  2. LIPITOR [Suspect]
     Indication: BLOOD CHOLESTEROL INCREASED
     Dosage: SEE IMAGE
     Route: 048
     Dates: end: 20050401
  3. BENICAR [Concomitant]
  4. COREG [Concomitant]
  5. CALCIUM (CALCIUM) [Concomitant]
  6. FISH OIL (FISH OIL) [Concomitant]

REACTIONS (7)
  - DRUG EFFECT DECREASED [None]
  - MYALGIA [None]
  - NEUROPATHY [None]
  - OSTEOARTHRITIS [None]
  - SPINAL OSTEOARTHRITIS [None]
  - SWELLING [None]
  - VERTIGO [None]
